FAERS Safety Report 22595070 (Version 1)
Quarter: 2023Q2

REPORT INFORMATION
  Report Type: Spontaneous
  Country: US (occurrence: None)
  Receive Date: 20230612
  Receipt Date: 20230612
  Transmission Date: 20230722
  Serious: Yes (Hospitalization)
  Sender: FDA-Public Use
  Company Number: None

PATIENT
  Sex: Female

DRUGS (1)
  1. EVEROLIMUS [Suspect]
     Active Substance: EVEROLIMUS
     Dosage: FREQUENCY : TWICE A DAY;?
     Route: 048

REACTIONS (5)
  - Eye infection staphylococcal [None]
  - Herpes zoster [None]
  - Nausea [None]
  - Fatigue [None]
  - Therapy interrupted [None]
